FAERS Safety Report 8487085-0 (Version None)
Quarter: 2012Q3

REPORT INFORMATION
  Report Type: 
  Country: None (occurrence: None)
  Receive Date: 20120704
  Receipt Date: 20120703
  Transmission Date: 20120928
  Serious: Yes (Other)
  Sender: FDA-Public Use
  Company Number: PHEH2012US013165

PATIENT
  Sex: Female

DRUGS (1)
  1. MYFORTIC [Suspect]
     Dosage: 360 MG, BID
     Route: 048

REACTIONS (2)
  - JOINT SWELLING [None]
  - PAIN [None]
